FAERS Safety Report 7241010-9 (Version None)
Quarter: 2011Q1

REPORT INFORMATION
  Report Type: 
  Country: None (occurrence: None)
  Receive Date: 20110120
  Receipt Date: 20110120
  Transmission Date: 20110831
  Serious: No
  Sender: FDA-Public Use
  Company Number: None

PATIENT
  Sex: Female

DRUGS (1)
  1. LACTULOSE [Suspect]
     Indication: CONSTIPATION
     Dosage: 30 ML PO  X ONE DOSE
     Route: 048
     Dates: start: 20101201

REACTIONS (2)
  - VIRAL INFECTION [None]
  - ILEUS [None]
